FAERS Safety Report 5144347-2 (Version None)
Quarter: 2006Q4

REPORT INFORMATION
  Report Type: 
  Country: None (occurrence: None)
  Receive Date: 20061030
  Receipt Date: 20061017
  Transmission Date: 20070319
  Serious: Yes (Death)
  Sender: FDA-Public Use
  Company Number: US200610002904

PATIENT
  Sex: Female

DRUGS (3)
  1. GEMZAR [Suspect]
     Indication: BREAST CANCER
  2. DEXAMETHASONE TAB [Concomitant]
  3. KYTRIL [Concomitant]

REACTIONS (1)
  - DEATH [None]
